FAERS Safety Report 8934711 (Version 1)
Quarter: 2012Q4

REPORT INFORMATION
  Report Type: 
  Country: US (occurrence: US)
  Receive Date: 20121129
  Receipt Date: 20121129
  Transmission Date: 20130627
  Serious: Yes (Hospitalization, Other)
  Sender: FDA-Public Use
  Company Number: CHPA2012US023828

PATIENT
  Age: 56 Year
  Sex: Female

DRUGS (5)
  1. EXCEDRIN MIGRAINE [Suspect]
     Indication: HEADACHE
     Dosage: 1DF as needed
     Route: 048
  2. EXCEDRIN MIGRAINE [Suspect]
     Dosage: 1 pill as needed
     Route: 048
  3. EXCEDRIN MIGRAINE [Suspect]
     Indication: HEADACHE
     Dosage: 1DF as needed
     Route: 048
  4. EXCEDRIN MIGRAINE [Suspect]
     Indication: HEADACHE
     Dosage: 1DF as needed
     Route: 048
  5. PREMARIN [Concomitant]

REACTIONS (4)
  - Diverticulitis [Recovered/Resolved]
  - Heart rate irregular [Recovered/Resolved]
  - Hypertension [Recovered/Resolved]
  - Incorrect dose administered [Unknown]
